FAERS Safety Report 8290221-2 (Version None)
Quarter: 2012Q1

REPORT INFORMATION
  Report Type: 
  Country: None (occurrence: None)
  Receive Date: 20120316
  Receipt Date: 20090309
  Transmission Date: 20120608
  Serious: Yes (Other)
  Sender: FDA-Public Use
  Company Number: PHEH2009US02441

PATIENT
  Age: 64 Year
  Sex: Male

DRUGS (5)
  1. PROCRIT [Concomitant]
  2. FISH OIL (FISH OIL) [Concomitant]
  3. CALCITROL (CALCIUMM BARBONATE, ERGOCALCIFEROL, RETINOL) [Concomitant]
  4. TEKTURNA [Suspect]
     Indication: HYPERTENSION
     Dosage: 150MG, QD
  5. PROCARDIA XL [Concomitant]

REACTIONS (3)
  - ANGIOEDEMA [None]
  - LIP SWELLING [None]
  - SWOLLEN TONGUE [None]
